FAERS Safety Report 24720479 (Version 1)
Quarter: 2024Q4

REPORT INFORMATION
  Report Type: Other
  Country: US (occurrence: US)
  Receive Date: 20241211
  Receipt Date: 20241211
  Transmission Date: 20250114
  Serious: Yes (Hospitalization)
  Sender: ALVOGEN
  Company Number: US-ALVOGEN-2024095925

PATIENT
  Sex: Male

DRUGS (8)
  1. DOXORUBICIN [Suspect]
     Active Substance: DOXORUBICIN
     Indication: Testicular germ cell tumour
     Dosage: 30 MG/M2 GIVEN INTRAVENOUSLY OVER 15 MINUTES
     Route: 042
  2. CISPLATIN [Suspect]
     Active Substance: CISPLATIN
     Indication: Testicular germ cell tumour
     Dosage: 30 MG/M2 GIVEN INTRAVENOUSLY OVER 2 HOURS
     Route: 042
  3. PACLITAXEL [Suspect]
     Active Substance: PACLITAXEL
     Indication: Testicular germ cell tumour
     Dosage: 100 MG/M2 GIVEN INTRAVENOUS OVER ONE HOUR EVERY 2-3 WEEKS
     Route: 042
  4. DEXAMETHASONE [Concomitant]
     Active Substance: DEXAMETHASONE
     Indication: Testicular germ cell tumour
     Dosage: 10 MG
  5. FOSAPREPITANT [Concomitant]
     Active Substance: FOSAPREPITANT
     Indication: Testicular germ cell tumour
     Dosage: 150 MG
  6. ONDANSETRON [Concomitant]
     Active Substance: ONDANSETRON
     Indication: Testicular germ cell tumour
     Dosage: 16 MG
  7. FAMOTIDINE [Concomitant]
     Active Substance: FAMOTIDINE
     Indication: Testicular germ cell tumour
     Dosage: 20MG
  8. DIPHENHYDRAMINE [Concomitant]
     Active Substance: DIPHENHYDRAMINE
     Indication: Testicular germ cell tumour
     Dosage: 50 MG

REACTIONS (8)
  - Respiratory failure [Unknown]
  - Metastases to lung [Unknown]
  - Metastases to central nervous system [Unknown]
  - Disease progression [Unknown]
  - Toxicity to various agents [Unknown]
  - Seizure [Unknown]
  - Diarrhoea [Unknown]
  - Off label use [Unknown]
